FAERS Safety Report 18228605 (Version 1)
Quarter: 2020Q3

REPORT INFORMATION
  Report Type: Spontaneous
  Country: GB (occurrence: GB)
  Receive Date: 20200903
  Receipt Date: 20200903
  Transmission Date: 20201103
  Serious: Yes (Other)
  Sender: FDA-Public Use
  Company Number: GB-TEVA-2020-GB-1822369

PATIENT
  Age: 65 Year
  Sex: Female
  Weight: 54 kg

DRUGS (7)
  1. GABAPENTIN. [Suspect]
     Active Substance: GABAPENTIN
     Dosage: 600 MG
     Dates: start: 20190717
  2. ADCAL [Concomitant]
     Dosage: 2 DOSAGE FORMS
     Dates: start: 20180810
  3. SOLIFENACIN [Concomitant]
     Active Substance: SOLIFENACIN
     Dosage: ONE OR TWO DAILY.
     Dates: start: 20180810
  4. TEVA UK CITALOPRAM [Concomitant]
     Dosage: 1 DOSAGE FORMS
     Dates: start: 20180810
  5. FYBOGEL [Concomitant]
     Active Substance: PLANTAGO OVATA SEED
     Dosage: 2 DOSAGE FORMS DAILY;
     Dates: start: 20180810
  6. TEVA UK LACTULOSE [Concomitant]
     Dosage: 30 ML
     Dates: start: 20180810
  7. BACLOFEN. [Concomitant]
     Active Substance: BACLOFEN
     Dosage: 4  DOSAGE FORMS ,SLOWLY WEAN OFF.
     Dates: start: 20180810

REACTIONS (1)
  - Muscle spasms [Recovered/Resolved]

NARRATIVE: CASE EVENT DATE: 20200731
